FAERS Safety Report 9757261 (Version 3)
Quarter: 2014Q1

REPORT INFORMATION
  Report Type: Report from Study
  Country: US (occurrence: US)
  Receive Date: 20131213
  Receipt Date: 20140318
  Transmission Date: 20141002
  Serious: No
  Sender: FDA-Public Use
  Company Number: US-ASTRAZENECA-2012SE91066

PATIENT
  Age: 64 Year
  Sex: Female
  Weight: 54.4 kg

DRUGS (5)
  1. SEROQUEL [Suspect]
     Indication: BIPOLAR DISORDER
     Route: 048
     Dates: start: 2010, end: 20131130
  2. SIMVASTATIN [Concomitant]
     Indication: BLOOD CHOLESTEROL
     Route: 048
  3. TRIAMTERENE [Concomitant]
     Indication: BLOOD PRESSURE
     Dosage: 75/50
     Route: 048
  4. KLOR-CON [Concomitant]
     Indication: BLOOD POTASSIUM
     Route: 048
  5. ACYCLOVIR [Concomitant]
     Indication: HERPES VIRUS INFECTION
     Route: 048

REACTIONS (4)
  - Type 2 diabetes mellitus [Unknown]
  - Bronchitis [Unknown]
  - Malaise [Unknown]
  - Drug dose omission [Not Recovered/Not Resolved]
